FAERS Safety Report 7082444-5 (Version None)
Quarter: 2010Q4

REPORT INFORMATION
  Report Type: 
  Country: None (occurrence: None)
  Receive Date: 20101102
  Receipt Date: 20101102
  Transmission Date: 20110411
  Serious: Yes (Life-Threatening)
  Sender: FDA-Public Use
  Company Number: None

PATIENT
  Age: 63 Year
  Sex: Male

DRUGS (1)
  1. SULFAMETHOXAZOLE/TRJMETHOPRIM [Suspect]
     Indication: SUBCUTANEOUS ABSCESS
     Dosage: 800/160 MG BID
     Dates: start: 20100917, end: 20100921

REACTIONS (5)
  - FUNGAL INFECTION [None]
  - PAIN [None]
  - RASH [None]
  - SKIN DISCOLOURATION [None]
  - SKIN EXFOLIATION [None]
